FAERS Safety Report 10855856 (Version 1)
Quarter: 2015Q1

REPORT INFORMATION
  Report Type: Spontaneous
  Country: AR (occurrence: AR)
  Receive Date: 20150223
  Receipt Date: 20150223
  Transmission Date: 20150721
  Serious: Yes (Other)
  Sender: FDA-Public Use
  Company Number: AR-PFIZER INC-2015060231

PATIENT
  Age: 40 Year
  Sex: Female

DRUGS (1)
  1. XALKORI [Suspect]
     Active Substance: CRIZOTINIB
     Indication: NON-SMALL CELL LUNG CANCER METASTATIC
     Dosage: 250 MG, TWICE A DAY
     Route: 048
     Dates: start: 20131207

REACTIONS (2)
  - Diabetic coma [Recovered/Resolved]
  - Abasia [Recovered/Resolved]
